FAERS Safety Report 18158779 (Version 4)
Quarter: 2022Q2

REPORT INFORMATION
  Report Type: Spontaneous
  Country: US (occurrence: US)
  Receive Date: 20200817
  Receipt Date: 20220602
  Transmission Date: 20220721
  Serious: Yes (Other)
  Sender: FDA-Public Use
  Company Number: US-GILEAD-2020-0489748

PATIENT
  Sex: Male
  Weight: 74.83 kg

DRUGS (55)
  1. VIREAD [Suspect]
     Active Substance: TENOFOVIR DISOPROXIL FUMARATE
     Indication: HIV infection
     Dosage: UNK
     Route: 048
     Dates: start: 2006
  2. VIREAD [Suspect]
     Active Substance: TENOFOVIR DISOPROXIL FUMARATE
     Dosage: UNK
     Route: 048
     Dates: start: 200802, end: 2009
  3. ATRIPLA [Suspect]
     Active Substance: EFAVIRENZ\EMTRICITABINE\TENOFOVIR DISOPROXIL FUMARATE
     Indication: HIV infection
     Dosage: UNK
     Route: 065
     Dates: start: 2006, end: 2008
  4. TRUVADA [Suspect]
     Active Substance: EMTRICITABINE\TENOFOVIR DISOPROXIL FUMARATE
     Indication: HIV infection
     Dosage: UNK
     Route: 048
     Dates: start: 20100702, end: 20161026
  5. TRUVADA [Suspect]
     Active Substance: EMTRICITABINE\TENOFOVIR DISOPROXIL FUMARATE
     Dosage: UNK
     Route: 048
     Dates: start: 2009, end: 2017
  6. BIKTARVY [Concomitant]
     Active Substance: BICTEGRAVIR SODIUM\EMTRICITABINE\TENOFOVIR ALAFENAMIDE FUMARATE
  7. DESCOVY [Concomitant]
     Active Substance: EMTRICITABINE\TENOFOVIR ALAFENAMIDE FUMARATE
  8. ISENTRESS [Concomitant]
     Active Substance: RALTEGRAVIR POTASSIUM
  9. KALETRA [Concomitant]
     Active Substance: LOPINAVIR\RITONAVIR
  10. NORVIR [Concomitant]
     Active Substance: RITONAVIR
  11. PREZISTA [Concomitant]
     Active Substance: DARUNAVIR ETHANOLATE
  12. REYATAZ [Concomitant]
     Active Substance: ATAZANAVIR SULFATE
  13. TIVICAY [Concomitant]
     Active Substance: DOLUTEGRAVIR SODIUM
  14. TRIZIVIR [Concomitant]
     Active Substance: ABACAVIR SULFATE\LAMIVUDINE\ZIDOVUDINE
  15. VIDEX [Concomitant]
     Active Substance: DIDANOSINE
  16. ZIAGEN [Concomitant]
     Active Substance: ABACAVIR SULFATE
  17. ATORVASTATIN [Concomitant]
     Active Substance: ATORVASTATIN
  18. AZITHROMYCIN [Concomitant]
     Active Substance: AZITHROMYCIN
  19. CHANTIX [Concomitant]
     Active Substance: VARENICLINE TARTRATE
  20. CIPROFLOXACIN [Concomitant]
     Active Substance: CIPROFLOXACIN
  21. CLINDAMYCIN [Concomitant]
     Active Substance: CLINDAMYCIN
  22. CORTISONE [Concomitant]
     Active Substance: CORTISONE
  23. CYCLOBENZAPRINE [Concomitant]
     Active Substance: CYCLOBENZAPRINE
  24. DAPSONE [Concomitant]
     Active Substance: DAPSONE
  25. DOCUSATE SODIUM [Concomitant]
     Active Substance: DOCUSATE SODIUM
  26. DOXYCYCLINE [Concomitant]
     Active Substance: DOXYCYCLINE
  27. FLAGYL [METRONIDAZOLE;NYSTATIN] [Concomitant]
  28. FLUCONAZOLE [Concomitant]
     Active Substance: FLUCONAZOLE
  29. FUROSEMIDE [Concomitant]
     Active Substance: FUROSEMIDE
  30. GABAPENTIN [Concomitant]
     Active Substance: GABAPENTIN
  31. HYDROCODONE BITARTRATE AND ACETAMINOPHEN [Concomitant]
     Active Substance: ACETAMINOPHEN\HYDROCODONE BITARTRATE
  32. IBUPROFEN [Concomitant]
     Active Substance: IBUPROFEN
  33. KETOPROFEN [Concomitant]
     Active Substance: KETOPROFEN
  34. LAMICTAL [Concomitant]
     Active Substance: LAMOTRIGINE
  35. LEVOFLOXACIN [Concomitant]
     Active Substance: LEVOFLOXACIN
  36. LEXIVA [Concomitant]
     Active Substance: FOSAMPRENAVIR CALCIUM
  37. MELOXICAM [Concomitant]
     Active Substance: MELOXICAM
  38. METAMUCIL THERAPY FOR REGULARITY [Concomitant]
     Active Substance: PSYLLIUM HUSK
  39. METOPROLOL TARTRATE [Concomitant]
     Active Substance: METOPROLOL TARTRATE
  40. METRONIDAZOLE [Concomitant]
     Active Substance: METRONIDAZOLE
  41. NABUMETONE [Concomitant]
     Active Substance: NABUMETONE
  42. NAPROXEN [Concomitant]
     Active Substance: NAPROXEN
  43. OLANZAPINE [Concomitant]
     Active Substance: OLANZAPINE
  44. OXYCODONE AND ACETAMINOPHEN [Concomitant]
     Active Substance: ACETAMINOPHEN\OXYCODONE HYDROCHLORIDE
  45. PRAVASTATIN [Concomitant]
     Active Substance: PRAVASTATIN
  46. QUETIAPINE FUMARATE [Concomitant]
     Active Substance: QUETIAPINE FUMARATE
  47. RALTEGRAVIR [Concomitant]
     Active Substance: RALTEGRAVIR
  48. RISPERIDONE [Concomitant]
     Active Substance: RISPERIDONE
  49. TENOFOVIR [Concomitant]
     Active Substance: TENOFOVIR
  50. TIZANIDINE HYDROCHLORIDE [Concomitant]
     Active Substance: TIZANIDINE HYDROCHLORIDE
  51. TRAMADOL [Concomitant]
     Active Substance: TRAMADOL
  52. VALPROIC ACID [Concomitant]
     Active Substance: VALPROIC ACID
  53. VITAMIN D2 [Concomitant]
     Active Substance: ERGOCALCIFEROL
  54. ZYPREXA [Concomitant]
     Active Substance: OLANZAPINE
  55. MINERALS\VITAMINS [Concomitant]
     Active Substance: MINERALS\VITAMINS

REACTIONS (8)
  - Osteoporosis [Recovered/Resolved]
  - Osteonecrosis [Unknown]
  - Anhedonia [Unknown]
  - Emotional distress [Recovered/Resolved]
  - Pain [Recovered/Resolved]
  - Anxiety [Unknown]
  - Osteoarthritis [Not Recovered/Not Resolved]
  - Bone loss [Unknown]

NARRATIVE: CASE EVENT DATE: 20090101
